FAERS Safety Report 10186487 (Version 4)
Quarter: 2014Q4

REPORT INFORMATION
  Report Type: Spontaneous
  Country: DE (occurrence: DE)
  Receive Date: 20140521
  Receipt Date: 20141114
  Transmission Date: 20150528
  Serious: Yes (Hospitalization, Other)
  Sender: FDA-Public Use
  Company Number: DE-ABBVIE-14P-062-1225417-00

PATIENT
  Age: 19 Year
  Sex: Female

DRUGS (4)
  1. KLACID FILMTABLETTEN 250 MG [Suspect]
     Active Substance: CLARITHROMYCIN
     Indication: PERTUSSIS
     Route: 065
     Dates: end: 20140321
  2. KLACID FILMTABLETTEN 250 MG [Suspect]
     Active Substance: CLARITHROMYCIN
     Indication: TONSILLITIS
     Route: 065
  3. YELLOW FEVER VACCINE NOS [Concomitant]
     Active Substance: YELLOW FEVER VIRUS STRAIN 17D-204 LIVE ANTIGEN
     Indication: PRODUCT USED FOR UNKNOWN INDICATION
     Dates: start: 201403
  4. VACCINES [Concomitant]
     Active Substance: UNSPECIFIED INGREDIENT
     Indication: PRODUCT USED FOR UNKNOWN INDICATION

REACTIONS (5)
  - Autonomic neuropathy [Unknown]
  - Schizophrenia, paranoid type [Recovering/Resolving]
  - Psychotic disorder [Unknown]
  - Weight decreased [Unknown]
  - Anogenital warts [Recovering/Resolving]

NARRATIVE: CASE EVENT DATE: 2014
